FAERS Safety Report 6998074-7 (Version None)
Quarter: 2010Q3

REPORT INFORMATION
  Report Type: 
  Country: None (occurrence: None)
  Receive Date: 20100920
  Receipt Date: 20070607
  Transmission Date: 20110219
  Serious: Yes (Hospitalization)
  Sender: FDA-Public Use
  Company Number: US-ASTRAZENECA-2006UW23934

PATIENT
  Sex: Male
  Weight: 67.1 kg

DRUGS (2)
  1. SEROQUEL [Suspect]
     Dosage: 25-200 MG
     Route: 048
     Dates: start: 20011017
  2. RISPERDAL [Concomitant]

REACTIONS (3)
  - DIABETES MELLITUS [None]
  - DIABETIC COMA [None]
  - DIABETIC KETOACIDOSIS [None]
